FAERS Safety Report 8296304-5 (Version None)
Quarter: 2012Q2

REPORT INFORMATION
  Report Type: 
  Country: None (occurrence: None)
  Receive Date: 20120418
  Receipt Date: 20120411
  Transmission Date: 20120825
  Serious: Yes (Hospitalization, Other)
  Sender: FDA-Public Use
  Company Number: US-MPIJNJ-2011-06312

PATIENT
  Age: 72 Year
  Sex: Male
  Weight: 87.664 kg

DRUGS (3)
  1. VELCADE [Suspect]
     Indication: MULTIPLE MYELOMA
     Dosage: 1.3 MG, 1/WEEK
     Route: 042
     Dates: start: 20110513
  2. ZOMETA [Suspect]
     Indication: BONE LOSS
     Dosage: 2 MG, UNK
     Route: 042
     Dates: start: 20110513
  3. DECADRON [Concomitant]
     Indication: PROPHYLACTIC CHEMOTHERAPY
     Dosage: 40 MG, UNK
     Route: 042
     Dates: start: 20110513

REACTIONS (9)
  - HAEMOPTYSIS [None]
  - PNEUMONIA [None]
  - ASTHENIA [None]
  - DEHYDRATION [None]
  - FALL [None]
  - DIZZINESS [None]
  - HYPOTENSION [None]
  - HYPOCALCAEMIA [None]
  - HYPONATRAEMIA [None]
